FAERS Safety Report 8985144 (Version 2)
Quarter: 2013Q1

REPORT INFORMATION
  Report Type: Spontaneous
  Country: US (occurrence: US)
  Receive Date: 20121226
  Receipt Date: 20130305
  Transmission Date: 20140127
  Serious: Yes (Other)
  Sender: FDA-Public Use
  Company Number: US-BAYER-2012-134317

PATIENT
  Age: 29 Year
  Sex: Female

DRUGS (1)
  1. MIRENA [Suspect]
     Indication: CONTRACEPTION
     Dosage: 20 MCG/24HR, CONT
     Route: 015
     Dates: start: 20100804

REACTIONS (9)
  - Device dislocation [None]
  - Genital infection [None]
  - Vulvovaginal pruritus [None]
  - Device expulsion [None]
  - Medical device discomfort [None]
  - Amenorrhoea [None]
  - Vulvovaginal candidiasis [None]
  - Vaginal discharge [None]
  - Vulvovaginal burning sensation [None]
